FAERS Safety Report 5341639-9 (Version None)
Quarter: 2007Q2

REPORT INFORMATION
  Report Type: 
  Country: None (occurrence: None)
  Receive Date: 20070529
  Receipt Date: 20070529
  Transmission Date: 20071010
  Serious: Yes (Hospitalization)
  Sender: FDA-Public Use
  Company Number: None

PATIENT
  Age: 46 Year
  Sex: Male
  Weight: 55.3388 kg

DRUGS (5)
  1. LAMICTAL [Suspect]
     Indication: CONVULSION
     Dates: start: 20070316
  2. LAMICTAL [Suspect]
     Indication: CONVULSION
     Dates: start: 20070411
  3. QVAR 40 [Concomitant]
  4. ALBUTEROL [Concomitant]
  5. SINGULAIR [Concomitant]

REACTIONS (7)
  - CONVULSION [None]
  - COUGH [None]
  - DIARRHOEA [None]
  - DIZZINESS [None]
  - HAEMOPTYSIS [None]
  - HEADACHE [None]
  - ODYNOPHAGIA [None]
